FAERS Safety Report 26187494 (Version 2)
Quarter: 2025Q4

REPORT INFORMATION
  Report Type: Report from Study
  Country: US (occurrence: US)
  Receive Date: 20251222
  Receipt Date: 20251223
  Transmission Date: 20260118
  Serious: No
  Sender: NOVARTIS
  Company Number: US-002147023-NVSC2025US194023

PATIENT
  Age: 52 Year
  Sex: Male

DRUGS (1)
  1. KESIMPTA [Suspect]
     Active Substance: OFATUMUMAB
     Indication: Product used for unknown indication
     Dosage: 20 MG/0.4 ML
     Route: 065
     Dates: start: 202510

REACTIONS (13)
  - Arthritis [Unknown]
  - Intervertebral disc protrusion [Unknown]
  - Back pain [Unknown]
  - Pain [Unknown]
  - Gait disturbance [Unknown]
  - Pain in extremity [Unknown]
  - Sensory disturbance [Unknown]
  - Visual impairment [Unknown]
  - Lacrimation increased [Unknown]
  - Emotional disorder [Unknown]
  - Fear [Unknown]
  - Skin hyperpigmentation [Unknown]
  - Lipoma [Unknown]

NARRATIVE: CASE EVENT DATE: 20251101
